FAERS Safety Report 5520504-8 (Version None)
Quarter: 2007Q4

REPORT INFORMATION
  Report Type: 
  Country: None (occurrence: None)
  Receive Date: 20071119
  Receipt Date: 20071109
  Transmission Date: 20080405
  Serious: Yes (Disabling)
  Sender: FDA-Public Use
  Company Number: JP-ELI_LILLY_AND_COMPANY-JP200711002699

PATIENT
  Age: 66 Year
  Sex: Female

DRUGS (2)
  1. GEMZAR [Suspect]
     Indication: METASTASES TO LUNG
     Dosage: UNK, OTHER
     Route: 042
  2. NAVELBINE [Concomitant]
     Indication: METASTASES TO LUNG
     Dosage: UNK, OTHER
     Route: 042

REACTIONS (1)
  - SKIN INDURATION [None]
